FAERS Safety Report 4618590-2 (Version None)
Quarter: 2005Q1

REPORT INFORMATION
  Report Type: 
  Country: None (occurrence: None)
  Receive Date: 20050323
  Receipt Date: 20050308
  Transmission Date: 20050727
  Serious: Yes (Life-Threatening, Hospitalization, Disabling)
  Sender: FDA-Public Use
  Company Number: EWC050242667

PATIENT
  Age: 50 Year
  Sex: Male
  Weight: 76 kg

DRUGS (3)
  1. GEMCITABINE HYDROCHLORIDE-IV  (GEMCITABINE) [Suspect]
     Indication: BLADDER CANCER
     Dosage: 1000 MG/M2/ 2 OTHER
     Route: 050
     Dates: start: 20050203, end: 20050203
  2. GEMCITABINE HYDROCHLORIDE-IV (GEMCITABINE) [Suspect]
  3. CISPLATIN [Concomitant]

REACTIONS (6)
  - ACIDOSIS [None]
  - ARTERIAL THROMBOSIS LIMB [None]
  - HAEMODIALYSIS [None]
  - ILIAC ARTERY THROMBOSIS [None]
  - RENAL FAILURE [None]
  - THROMBOSIS [None]
